FAERS Safety Report 8220541-9 (Version None)
Quarter: 2012Q1

REPORT INFORMATION
  Report Type: 
  Country: None (occurrence: None)
  Receive Date: 20120320
  Receipt Date: 20120311
  Transmission Date: 20120608
  Serious: Yes (Death)
  Sender: FDA-Public Use
  Company Number: IL-NOVOPROD-347270

PATIENT
  Age: 28 Year
  Sex: Male

DRUGS (1)
  1. NOVOSEVEN [Suspect]
     Indication: HAEMORRHAGE
     Dosage: 7 MG, QD
     Route: 065
     Dates: start: 20120210, end: 20120210

REACTIONS (1)
  - HAEMORRHAGE [None]
